FAERS Safety Report 9973152 (Version 2)
Quarter: 2014Q1

REPORT INFORMATION
  Report Type: Report from Study
  Country: US (occurrence: US)
  Receive Date: 20140306
  Receipt Date: 20140306
  Transmission Date: 20141002
  Serious: Yes (Other)
  Sender: FDA-Public Use
  Company Number: US-ABBVIE-13P-163-1109607-00

PATIENT
  Age: 39 Year
  Sex: Female

DRUGS (3)
  1. HUMIRA [Suspect]
     Indication: CROHN^S DISEASE
     Dates: start: 20130312
  2. LOTREL [Concomitant]
     Indication: HYPERTENSION
     Dosage: 10/20 MG DAILY
  3. IMURAN [Concomitant]
     Indication: CROHN^S DISEASE

REACTIONS (5)
  - Fall [Recovering/Resolving]
  - Foot fracture [Recovered/Resolved]
  - Injection site urticaria [Recovered/Resolved]
  - Injection site pruritus [Recovered/Resolved]
  - Pain in extremity [Not Recovered/Not Resolved]
